FAERS Safety Report 25651893 (Version 2)
Quarter: 2025Q3

REPORT INFORMATION
  Report Type: Report from Study
  Country: US (occurrence: US)
  Receive Date: 20250806
  Receipt Date: 20250929
  Transmission Date: 20251021
  Serious: Yes (Hospitalization)
  Sender: GILEAD
  Company Number: US-GILEAD-2025-0723205

PATIENT
  Age: 77 Year
  Sex: Female

DRUGS (1)
  1. AZTREONAM LYSINE [Suspect]
     Active Substance: AZTREONAM LYSINE
     Indication: Bronchiectasis
     Dosage: 1 ML (75 MG) VIA ALTERA NEBULIZER THREE TIMES DAILY. ALTERNATE 28 DAYS ON AND 28 DAYS OFF
     Route: 055

REACTIONS (4)
  - Cardiac disorder [Unknown]
  - Condition aggravated [Unknown]
  - Product use in unapproved indication [Not Recovered/Not Resolved]
  - Nasopharyngitis [Not Recovered/Not Resolved]
